FAERS Safety Report 7203406-0 (Version None)
Quarter: 2010Q4

REPORT INFORMATION
  Report Type: 
  Country: None (occurrence: None)
  Receive Date: 20101230
  Receipt Date: 20101221
  Transmission Date: 20110411
  Serious: Yes (Hospitalization, Disabling)
  Sender: FDA-Public Use
  Company Number: CH-JNJFOC-20101206771

PATIENT
  Age: 78 Year
  Sex: Female
  Weight: 50 kg

DRUGS (8)
  1. RISPERDAL [Suspect]
     Indication: ANXIETY DISORDER
     Route: 048
  2. IBUPROFEN [Suspect]
     Indication: PRODUCT USED FOR UNKNOWN INDICATION
     Route: 048
  3. SEROQUEL [Suspect]
     Indication: ANXIETY DISORDER
     Route: 048
  4. DILTIAZEM [Suspect]
     Indication: ESSENTIAL HYPERTENSION
     Dosage: 90MG IN THE MORNING 2 DAYS BEFORE ADMISSION
     Route: 048
  5. DILTIAZEM [Suspect]
     Route: 048
  6. DILTIAZEM [Suspect]
     Route: 048
  7. DILTIAZEM [Suspect]
     Dosage: 180 MG IN MORNING AND 90 MG IN EVENING
     Route: 048
  8. ASPIRIN [Concomitant]
     Indication: PROPHYLACTIC CHEMOTHERAPY
     Route: 048

REACTIONS (5)
  - ATAXIA [None]
  - CREATININE RENAL CLEARANCE DECREASED [None]
  - GAIT DISTURBANCE [None]
  - HYPERTENSION [None]
  - SINUS BRADYCARDIA [None]
